FAERS Safety Report 7737182-X (Version None)
Quarter: 2011Q3

REPORT INFORMATION
  Report Type: 
  Country: None (occurrence: None)
  Receive Date: 20110908
  Receipt Date: 20110830
  Transmission Date: 20111222
  Serious: Yes (Hospitalization)
  Sender: FDA-Public Use
  Company Number: KR-ROCHE-801115

PATIENT
  Age: 79 Year
  Sex: Female

DRUGS (3)
  1. NAPROXEN [Suspect]
     Route: 048
  2. PIROXICAM [Suspect]
     Route: 048
  3. DICLOFENAC SODIUM [Suspect]
     Route: 048

REACTIONS (3)
  - INTESTINAL DIAPHRAGM DISEASE [None]
  - HAEMORRHAGIC ANAEMIA [None]
  - HAEMATOCHEZIA [None]
